FAERS Safety Report 11740971 (Version 1)
Quarter: 2015Q4

REPORT INFORMATION
  Report Type: Report from Study
  Country: US (occurrence: US)
  Receive Date: 20151115
  Receipt Date: 20151115
  Transmission Date: 20160304
  Serious: Yes (Death)
  Sender: FDA-Public Use
  Company Number: PHEH2015US023495

PATIENT
  Age: 85 Year
  Sex: Male

DRUGS (1)
  1. AFINITOR [Suspect]
     Active Substance: EVEROLIMUS
     Indication: RENAL CANCER
     Dosage: 05 MG, QD
     Route: 048
     Dates: start: 20150423

REACTIONS (1)
  - Death [Fatal]

NARRATIVE: CASE EVENT DATE: 20151105
